FAERS Safety Report 6944141-3 (Version None)
Quarter: 2010Q3

REPORT INFORMATION
  Report Type: 
  Country: None (occurrence: None)
  Receive Date: 20100827
  Receipt Date: 20100818
  Transmission Date: 20110219
  Serious: No
  Sender: FDA-Public Use
  Company Number: US-BIOGENIDEC-2010BI028811

PATIENT
  Age: 49 Year
  Sex: Female

DRUGS (1)
  1. TYSABRI [Suspect]
     Indication: MULTIPLE SCLEROSIS
     Route: 042
     Dates: start: 20090924

REACTIONS (5)
  - DEPRESSED MOOD [None]
  - MENTAL IMPAIRMENT [None]
  - POST PROCEDURAL COMPLICATION [None]
  - SPUTUM RETENTION [None]
  - VISUAL IMPAIRMENT [None]
